FAERS Safety Report 6694762-0 (Version None)
Quarter: 2010Q2

REPORT INFORMATION
  Report Type: 
  Country: None (occurrence: None)
  Receive Date: 20100423
  Receipt Date: 20100420
  Transmission Date: 20101027
  Serious: Yes (Hospitalization)
  Sender: FDA-Public Use
  Company Number: B0648411A

PATIENT
  Sex: Female

DRUGS (7)
  1. AUGMENTIN '125' [Suspect]
     Indication: DRUG USE FOR UNKNOWN INDICATION
     Dosage: 1G TWICE PER DAY
     Route: 048
     Dates: start: 20090102, end: 20090106
  2. PERFALGAN [Suspect]
     Indication: PAIN
     Dosage: 1G THREE TIMES PER DAY
     Route: 042
     Dates: start: 20090102, end: 20090103
  3. IXPRIM [Suspect]
     Indication: PAIN
     Dosage: 3UNIT PER DAY
     Route: 048
     Dates: start: 20090103, end: 20090104
  4. PLAVIX [Concomitant]
     Dosage: 75MG PER DAY
     Route: 065
  5. LEXOMIL [Concomitant]
     Dosage: 1UNIT PER DAY
     Route: 065
  6. CARDENSIEL [Concomitant]
     Dosage: 5MG PER DAY
     Route: 065
  7. LESCOL [Concomitant]
     Dosage: 40MG PER DAY
     Route: 065

REACTIONS (2)
  - C-REACTIVE PROTEIN INCREASED [None]
  - HEPATOCELLULAR INJURY [None]
